FAERS Safety Report 20393698 (Version 1)
Quarter: 2022Q1

REPORT INFORMATION
  Report Type: Spontaneous
  Country: US (occurrence: US)
  Receive Date: 20220128
  Receipt Date: 20220128
  Transmission Date: 20220423
  Serious: Yes (Other)
  Sender: FDA-Public Use
  Company Number: US-PFIZER INC-202200160529

PATIENT
  Age: 78 Year
  Sex: Female

DRUGS (2)
  1. MEROPENEM [Suspect]
     Active Substance: MEROPENEM
     Indication: Decubitus ulcer
     Dosage: UNK
  2. MEROPENEM [Suspect]
     Active Substance: MEROPENEM
     Indication: Skin bacterial infection

REACTIONS (3)
  - Drug resistance [Recovered/Resolved]
  - Skin necrosis [Recovered/Resolved]
  - Osteomyelitis [Recovered/Resolved]
